FAERS Safety Report 4343398-5 (Version None)
Quarter: 2004Q1

REPORT INFORMATION
  Report Type: 
  Country: None (occurrence: None)
  Receive Date: 20040325
  Receipt Date: 20031119
  Transmission Date: 20041129
  Serious: No
  Sender: FDA-Public Use
  Company Number: USA031153048

PATIENT
  Age: 57 Year
  Sex: Female
  Weight: 71 kg

DRUGS (2)
  1. FORTEO [Suspect]
     Dates: start: 20031001
  2. IRON [Concomitant]

REACTIONS (7)
  - BACK PAIN [None]
  - CONSTIPATION [None]
  - FEELING ABNORMAL [None]
  - HOT FLUSH [None]
  - HYPOTHYROIDISM [None]
  - PAIN IN EXTREMITY [None]
  - WEIGHT INCREASED [None]
